FAERS Safety Report 19403576 (Version 1)
Quarter: 2021Q2

REPORT INFORMATION
  Report Type: Spontaneous
  Country: US (occurrence: US)
  Receive Date: 20210610
  Receipt Date: 20210610
  Transmission Date: 20210717
  Serious: No
  Sender: FDA-Public Use
  Company Number: None

PATIENT
  Age: 57 Year
  Sex: Female

DRUGS (1)
  1. HUMIRA [Suspect]
     Active Substance: ADALIMUMAB
     Indication: COLITIS ULCERATIVE
     Dosage: ?          OTHER DOSE:40MG/0.4ML;?
     Route: 058
     Dates: start: 20210604

REACTIONS (6)
  - Headache [None]
  - Back pain [None]
  - Gastrointestinal disorder [None]
  - Pain in extremity [None]
  - Arthralgia [None]
  - Ankylosing spondylitis [None]

NARRATIVE: CASE EVENT DATE: 20210604
